FAERS Safety Report 8111078-6 (Version None)
Quarter: 2012Q1

REPORT INFORMATION
  Report Type: 
  Country: None (occurrence: None)
  Receive Date: 20120203
  Receipt Date: 20110405
  Transmission Date: 20120608
  Serious: No
  Sender: FDA-Public Use
  Company Number: US-GLAXOSMITHKLINE-A0921486A

PATIENT
  Age: 48 Year
  Sex: Female

DRUGS (6)
  1. ALPRAZOLAM [Concomitant]
  2. LAMICTAL [Suspect]
     Indication: BIPOLAR DISORDER
     Dosage: 2MG PER DAY
     Route: 048
  3. FLUOXETINE [Concomitant]
  4. SEROQUEL [Concomitant]
  5. ALAVERT [Concomitant]
  6. COUGH MEDICINE [Concomitant]

REACTIONS (1)
  - DRY MOUTH [None]
